FAERS Safety Report 8152788-4 (Version None)
Quarter: 2012Q1

REPORT INFORMATION
  Report Type: 
  Country: None (occurrence: None)
  Receive Date: 20120215
  Receipt Date: 20120201
  Transmission Date: 20120608
  Serious: Yes (Hospitalization, Other)
  Sender: FDA-Public Use
  Company Number: 2008AL010789

PATIENT
  Age: 76 Year
  Sex: Female

DRUGS (23)
  1. CARDIZEM [Concomitant]
  2. SYMBICORT [Concomitant]
  3. THEOPHYLLINE [Concomitant]
  4. FLONASE [Concomitant]
  5. XOPENEX [Concomitant]
  6. ATROVENT [Concomitant]
  7. VITAMIN D [Concomitant]
  8. CALCIUM [Concomitant]
  9. GLIMEPIRIDE [Concomitant]
  10. DIOVAN [Concomitant]
  11. DIGOXIN [Suspect]
     Indication: PRODUCT USED FOR UNKNOWN INDICATION
     Dosage: 0.125 MG; PO
     Route: 048
     Dates: start: 20080617
  12. TOPROL-XL [Concomitant]
  13. OMNICEF [Concomitant]
  14. ENTERIC [Concomitant]
  15. LASIX [Concomitant]
  16. POTASSIUM CHLORIDE [Concomitant]
  17. LOVENOX [Concomitant]
  18. PROTONIX [Concomitant]
  19. AMARYL [Concomitant]
  20. ROCEPHIN [Concomitant]
  21. RESTORIL [Concomitant]
  22. GUAIFENESIN [Concomitant]
  23. COUMADIN [Concomitant]

REACTIONS (22)
  - BLOOD PRESSURE INCREASED [None]
  - DYSPEPSIA [None]
  - MALAISE [None]
  - TOXICITY TO VARIOUS AGENTS [None]
  - CHRONIC OBSTRUCTIVE PULMONARY DISEASE [None]
  - CARDIAC FAILURE CONGESTIVE [None]
  - COUGH [None]
  - RECTAL HAEMORRHAGE [None]
  - ATRIAL FIBRILLATION [None]
  - HAEMORRHOIDS [None]
  - EXCORIATION [None]
  - BLADDER CANCER [None]
  - DYSPNOEA EXERTIONAL [None]
  - HEART RATE INCREASED [None]
  - DEHYDRATION [None]
  - PNEUMONIA [None]
  - CONTUSION [None]
  - INJURY [None]
  - HYPOTENSION [None]
  - PRESYNCOPE [None]
  - RENAL FAILURE ACUTE [None]
  - SYNCOPE [None]
